FAERS Safety Report 6579273-5 (Version None)
Quarter: 2010Q1

REPORT INFORMATION
  Report Type: 
  Country: None (occurrence: None)
  Receive Date: 20100203
  Receipt Date: 20100119
  Transmission Date: 20100710
  Serious: Yes (Death, Other)
  Sender: FDA-Public Use
  Company Number: 2010BI003042

PATIENT
  Age: 46 Year
  Sex: Male

DRUGS (3)
  1. ZEVALIN [Suspect]
     Indication: DIFFUSE LARGE B-CELL LYMPHOMA
  2. RITUXIMAB (CON.) [Concomitant]
  3. PREV MEDS [Concomitant]

REACTIONS (4)
  - DIFFUSE LARGE B-CELL LYMPHOMA [None]
  - MALIGNANT NEOPLASM PROGRESSION [None]
  - NEUTROPENIA [None]
  - THROMBOCYTOPENIA [None]
